FAERS Safety Report 15628633 (Version 1)
Quarter: 2018Q4

REPORT INFORMATION
  Report Type: Report from Study
  Country: IE (occurrence: IE)
  Receive Date: 20181116
  Receipt Date: 20181116
  Transmission Date: 20190205
  Serious: Yes (Other)
  Sender: FDA-Public Use
  Company Number: PHHY2018IE156957

PATIENT
  Sex: Male

DRUGS (1)
  1. COSENTYX [Suspect]
     Active Substance: SECUKINUMAB
     Indication: PSORIATIC ARTHROPATHY
     Dosage: 300 MG, UNK (LOADING DOSE)
     Route: 058
     Dates: start: 20181017, end: 20181108

REACTIONS (4)
  - Lip swelling [Unknown]
  - Tinea pedis [Unknown]
  - Expired product administered [Unknown]
  - Diarrhoea [Unknown]
